FAERS Safety Report 4863243-9 (Version None)
Quarter: 2005Q4

REPORT INFORMATION
  Report Type: 
  Country: None (occurrence: None)
  Receive Date: 20051219
  Receipt Date: 20051206
  Transmission Date: 20060501
  Serious: Yes (Disabling, Other)
  Sender: FDA-Public Use
  Company Number: 2005165190

PATIENT
  Age: 49 Year
  Sex: Female
  Weight: 92.9874 kg

DRUGS (7)
  1. NEURONTIN [Suspect]
     Indication: DEPRESSION
     Dosage: 1200 MG (300 MG, 4 IN 1 D), ORAL
     Route: 048
  2. VIOXX [Concomitant]
  3. PLAQUENIL [Concomitant]
  4. PROTONIX [Concomitant]
  5. WELLBUTRIN [Concomitant]
  6. ALL OTHER THERAPEUTIC PRODUCTS [Concomitant]
  7. ANTIDEPRESSANTS                   (ANTIDEPRESSANTS) [Concomitant]

REACTIONS (9)
  - BLOOD PRESSURE DECREASED [None]
  - CARDIAC FAILURE CONGESTIVE [None]
  - CEREBRAL THROMBOSIS [None]
  - CEREBROVASCULAR ACCIDENT [None]
  - DIZZINESS [None]
  - DYSPNOEA [None]
  - LOSS OF CONSCIOUSNESS [None]
  - MITRAL VALVE DISEASE [None]
  - VASCULAR OCCLUSION [None]
